FAERS Safety Report 25100275 (Version 4)
Quarter: 2025Q2

REPORT INFORMATION
  Report Type: Spontaneous
  Country: US (occurrence: US)
  Receive Date: 20250320
  Receipt Date: 20250527
  Transmission Date: 20250716
  Serious: Yes (Other)
  Sender: JOHNSON AND JOHNSON
  Company Number: US-JNJFOC-20250334853

PATIENT
  Sex: Male

DRUGS (12)
  1. XARELTO [Suspect]
     Active Substance: RIVAROXABAN
     Indication: Arrhythmogenic right ventricular dysplasia
     Route: 048
     Dates: start: 20250415
  2. SOTALOL [Concomitant]
     Active Substance: SOTALOL
     Indication: Arrhythmogenic right ventricular dysplasia
     Dates: start: 19980612
  3. SOTALOL [Concomitant]
     Active Substance: SOTALOL
     Dates: start: 19981201
  4. TRESIBA [Concomitant]
     Active Substance: INSULIN DEGLUDEC
     Indication: Type 2 diabetes mellitus
  5. OZEMPIC [Concomitant]
     Active Substance: SEMAGLUTIDE
     Indication: Diabetes mellitus
  6. OZEMPIC [Concomitant]
     Active Substance: SEMAGLUTIDE
     Indication: Type 2 diabetes mellitus
  7. GLIMEPIRIDE [Concomitant]
     Active Substance: GLIMEPIRIDE
     Indication: Type 2 diabetes mellitus
  8. ATORVASTATIN [Concomitant]
     Active Substance: ATORVASTATIN
     Indication: Blood cholesterol increased
  9. POTASSIUM [Concomitant]
     Active Substance: POTASSIUM
     Indication: Type 2 diabetes mellitus
  10. MAGNESIUM [Concomitant]
     Active Substance: MAGNESIUM
     Indication: Type 2 diabetes mellitus
  11. JARDIANCE [Concomitant]
     Active Substance: EMPAGLIFLOZIN
     Indication: Type 2 diabetes mellitus
  12. ELIQUIS [Concomitant]
     Active Substance: APIXABAN
     Indication: Product used for unknown indication

REACTIONS (6)
  - Haematoma [Not Recovered/Not Resolved]
  - Epistaxis [Not Recovered/Not Resolved]
  - Contusion [Recovering/Resolving]
  - Gingival bleeding [Recovering/Resolving]
  - Off label use [Unknown]
  - Inappropriate schedule of product administration [Unknown]
